FAERS Safety Report 7058936-1 (Version None)
Quarter: 2010Q4

REPORT INFORMATION
  Report Type: 
  Country: None (occurrence: None)
  Receive Date: 20101024
  Receipt Date: 20101013
  Transmission Date: 20110411
  Serious: Yes (Other)
  Sender: FDA-Public Use
  Company Number: HR-WYE-H18195610

PATIENT
  Sex: Female

DRUGS (3)
  1. CONTROLOC [Suspect]
     Indication: GASTROINTESTINAL DISORDER
     Route: 048
     Dates: start: 20100101, end: 20100901
  2. LIPEX [Concomitant]
     Dosage: UNKNOWN
     Dates: start: 20050101
  3. AMLODIPINE [Concomitant]
     Dosage: UNKNOWN
     Dates: start: 20000101

REACTIONS (1)
  - PROTEINURIA [None]
